FAERS Safety Report 9745659 (Version 2)
Quarter: 2013Q4

REPORT INFORMATION
  Report Type: Spontaneous
  Country: JP (occurrence: None)
  Receive Date: 20131204
  Receipt Date: 20131220
  Transmission Date: 20140711
  Serious: Yes (Life-Threatening)
  Sender: FDA-Public Use
  Company Number: JP-2013-3935

PATIENT
  Age: 78 Year
  Sex: Male
  Weight: 55 kg

DRUGS (10)
  1. NAVELBINE [Suspect]
     Indication: SQUAMOUS CELL CARCINOMA OF LUNG
     Route: 042
     Dates: start: 20120113, end: 20120113
  2. CARBOPLATIN [Suspect]
     Indication: SQUAMOUS CELL CARCINOMA OF LUNG
     Route: 042
     Dates: start: 2011
  3. GEMZAR (GEMCITABINE HYDROCHLORIDE) [Suspect]
     Indication: SQUAMOUS CELL CARCINOMA OF LUNG
     Route: 042
     Dates: start: 2011
  4. CISPLATIN [Suspect]
     Indication: SQUAMOUS CELL CARCINOMA
     Route: 042
     Dates: start: 20120113, end: 20120113
  5. MANNITOL [Concomitant]
  6. DECADRON (DEXAMETHASONE ACETATE) [Concomitant]
  7. ALOXI (PALONOSETRON HYDROCHLORIDE) INJECTION, 0.25MG/5ML [Concomitant]
  8. LASIX (FUROSEMIDE SODIUM) [Concomitant]
  9. EMEND (APREPITANT) [Concomitant]
  10. AMOBAN (ZOPICLONE) [Concomitant]

REACTIONS (5)
  - Renal failure [None]
  - Dyspnoea [None]
  - Oedema [None]
  - Oliguria [None]
  - Wheezing [None]
